FAERS Safety Report 6796059-7 (Version None)
Quarter: 2010Q2

REPORT INFORMATION
  Report Type: 
  Country: None (occurrence: None)
  Receive Date: 20100625
  Receipt Date: 20100615
  Transmission Date: 20101027
  Serious: Yes (Other)
  Sender: FDA-Public Use
  Company Number: CA-JNJFOC-20100605327

PATIENT
  Sex: Female
  Weight: 60.8 kg

DRUGS (6)
  1. REMICADE [Suspect]
     Indication: RHEUMATOID ARTHRITIS
     Dosage: HAS HAD 54 PREVIOUS INFLIXIMAB INFUSIONS.
     Route: 042
  2. REMICADE [Suspect]
     Route: 042
  3. METHOTREXATE SODIUM [Concomitant]
     Route: 048
  4. ACLASTA [Concomitant]
     Route: 042
  5. ADVAIR DISKUS 100/50 [Concomitant]
     Dosage: 2 PUFFERS DAILY
  6. HYDROCHLOROTHIAZIDE [Concomitant]
     Dosage: 1 TABLET DAILY
     Route: 048

REACTIONS (1)
  - CHEST PAIN [None]
